FAERS Safety Report 9173294 (Version 1)
Quarter: 2013Q1

REPORT INFORMATION
  Report Type: Spontaneous
  Country: DE (occurrence: None)
  Receive Date: 20130314
  Receipt Date: 20130314
  Transmission Date: 20140127
  Serious: No
  Sender: FDA-Public Use
  Company Number: GER/GER/13/0028489

PATIENT
  Age: 65 Year
  Sex: Male
  Weight: 90 kg

DRUGS (7)
  1. METFORMIN (METFORMIN) [Suspect]
     Indication: DIABETES MELLITUS
     Dosage: 200 MG, 1D, ORAL
     Route: 048
     Dates: start: 20120326
  2. JANUVIA (SITAGLIPTIN PHOSPHATE) [Concomitant]
  3. CAPTOPRIL (CAPTOPRIL) [Concomitant]
  4. NITRENDIPIN (NITRENDIPINE) [Concomitant]
  5. METOPROLOL (METOPROLOL) [Concomitant]
  6. SIMVASTATIN (SIMVASTATIN) [Concomitant]
  7. LAIF 900 (HYPERICUM PERFORATUM) [Concomitant]

REACTIONS (9)
  - Somnolence [None]
  - Lactic acidosis [None]
  - Acidosis [None]
  - Sepsis [None]
  - Hepatic failure [None]
  - Renal failure [None]
  - Laboratory test abnormal [None]
  - Ischaemic hepatitis [None]
  - Dialysis [None]
